FAERS Safety Report 6821058-6 (Version None)
Quarter: 2010Q3

REPORT INFORMATION
  Report Type: 
  Country: None (occurrence: None)
  Receive Date: 20100707
  Receipt Date: 20071105
  Transmission Date: 20110219
  Serious: No
  Sender: FDA-Public Use
  Company Number: US-PFIZER INC-2007093406

PATIENT
  Sex: Male
  Weight: 75 kg

DRUGS (1)
  1. SERTRALINE [Suspect]
     Indication: DEPRESSION
     Route: 048
     Dates: start: 20071031, end: 20071104

REACTIONS (5)
  - FEELING ABNORMAL [None]
  - MIDDLE INSOMNIA [None]
  - NAUSEA [None]
  - TREMOR [None]
  - UNEVALUABLE EVENT [None]
